FAERS Safety Report 7659917-7 (Version None)
Quarter: 2011Q3

REPORT INFORMATION
  Report Type: 
  Country: None (occurrence: None)
  Receive Date: 20110805
  Receipt Date: 20110725
  Transmission Date: 20111222
  Serious: No
  Sender: FDA-Public Use
  Company Number: DE-UCBSA-036162

PATIENT
  Sex: Male
  Weight: 70 kg

DRUGS (4)
  1. FOLSAURE [Concomitant]
     Indication: RHEUMATOID ARTHRITIS
     Dosage: 2X/WEEK 1 TABLET
     Route: 048
     Dates: start: 20071130
  2. CIMZIA [Suspect]
     Indication: RHEUMATOID ARTHRITIS
     Route: 058
     Dates: start: 20110527, end: 20110527
  3. METHOTREXATE [Concomitant]
     Indication: RHEUMATOID ARTHRITIS
     Dosage: 10 MG/WEEK
     Route: 048
     Dates: start: 20110413
  4. PREDNISOLONE [Concomitant]
     Indication: RHEUMATOID ARTHRITIS
     Route: 048
     Dates: start: 20110112

REACTIONS (2)
  - BRONCHITIS BACTERIAL [None]
  - HYPERSENSITIVITY [None]
